FAERS Safety Report 13969657 (Version 1)
Quarter: 2017Q3

REPORT INFORMATION
  Report Type: Spontaneous
  Country: US (occurrence: US)
  Receive Date: 20170914
  Receipt Date: 20170914
  Transmission Date: 20171128
  Serious: No
  Sender: FDA-Public Use
  Company Number: US-ASTELLAS-2016US038872

PATIENT
  Age: 84 Year
  Sex: Male

DRUGS (1)
  1. XTANDI [Suspect]
     Active Substance: ENZALUTAMIDE
     Indication: PROSTATE CANCER
     Route: 065

REACTIONS (23)
  - Muscle atrophy [Unknown]
  - Weight decreased [Unknown]
  - Muscular weakness [Unknown]
  - Arthralgia [Unknown]
  - Pain in extremity [Unknown]
  - Heart rate increased [Unknown]
  - Fatigue [Unknown]
  - Joint swelling [Unknown]
  - Asthenia [Unknown]
  - Hypertension [Unknown]
  - Vision blurred [Unknown]
  - Bone pain [Unknown]
  - Dizziness [Unknown]
  - Peripheral swelling [Unknown]
  - Confusional state [Unknown]
  - Dysgeusia [Unknown]
  - Fatigue [Unknown]
  - Hypertension [Unknown]
  - Weight decreased [Unknown]
  - Musculoskeletal pain [Unknown]
  - Joint swelling [Unknown]
  - Muscle atrophy [Unknown]
  - Asthenia [Unknown]

NARRATIVE: CASE EVENT DATE: 201609
